FAERS Safety Report 6903488-7 (Version None)
Quarter: 2010Q3

REPORT INFORMATION
  Report Type: 
  Country: None (occurrence: None)
  Receive Date: 20100803
  Receipt Date: 20081008
  Transmission Date: 20110219
  Serious: No
  Sender: FDA-Public Use
  Company Number: US-PFIZER INC-2008085244

PATIENT
  Sex: Female
  Weight: 83.91 kg

DRUGS (2)
  1. LYRICA [Suspect]
     Indication: FIBROMYALGIA
     Dates: start: 20080101
  2. MULTI-VITAMINS [Concomitant]

REACTIONS (4)
  - MALAISE [None]
  - PAIN [None]
  - PAIN IN EXTREMITY [None]
  - SEDATION [None]
